FAERS Safety Report 14803031 (Version 1)
Quarter: 2018Q2

REPORT INFORMATION
  Report Type: Spontaneous
  Country: US (occurrence: US)
  Receive Date: 20180424
  Receipt Date: 20180424
  Transmission Date: 20180711
  Serious: No
  Sender: FDA-Public Use
  Company Number: US-PURDUE-USA-2017-0142061

PATIENT

DRUGS (1)
  1. OXYCONTIN [Suspect]
     Active Substance: OXYCODONE HYDROCHLORIDE
     Indication: SINUS HEADACHE
     Dosage: UNK
     Route: 048

REACTIONS (1)
  - Headache [Unknown]
